FAERS Safety Report 8574620-7 (Version None)
Quarter: 2012Q3

REPORT INFORMATION
  Report Type: 
  Country: None (occurrence: None)
  Receive Date: 20120807
  Receipt Date: 20120726
  Transmission Date: 20120928
  Serious: Yes (Other)
  Sender: FDA-Public Use
  Company Number: DE-009507513-1208DEU000023

PATIENT

DRUGS (5)
  1. BLINDED PRE TRIAL THERAPY [Suspect]
     Indication: NEUROMUSCULAR BLOCKADE REVERSAL
     Dosage: UNK ML, UNK
     Route: 042
     Dates: start: 20120726, end: 20120726
  2. BLINDED NEOSTIGMINE [Suspect]
     Indication: NEUROMUSCULAR BLOCKADE REVERSAL
     Dosage: UNK ML, UNK
     Route: 042
     Dates: start: 20120726, end: 20120726
  3. BLINDED POST TRIAL THERAPY [Suspect]
     Indication: NEUROMUSCULAR BLOCKADE REVERSAL
     Dosage: UNK ML, UNK
     Route: 042
     Dates: start: 20120726, end: 20120726
  4. PLACEBO [Suspect]
     Indication: NEUROMUSCULAR BLOCKADE REVERSAL
     Dosage: UNK ML, UNK
     Route: 042
     Dates: start: 20120726, end: 20120726
  5. BLINDED SUGAMMADEX SODIUM [Suspect]
     Indication: NEUROMUSCULAR BLOCKADE REVERSAL
     Dosage: UNK ML, UNK
     Route: 042
     Dates: start: 20120726, end: 20120726

REACTIONS (1)
  - POST PROCEDURAL HAEMORRHAGE [None]
